FAERS Safety Report 12800164 (Version 2)
Quarter: 2016Q4

REPORT INFORMATION
  Report Type: Report from Study
  Country: BE (occurrence: BE)
  Receive Date: 20160930
  Receipt Date: 20161028
  Transmission Date: 20170207
  Serious: Yes (Hospitalization)
  Sender: FDA-Public Use
  Company Number: BE-ARIAD PHARMACEUTICALS, INC-2016BE007027

PATIENT
  Age: 78 Year
  Sex: Female

DRUGS (2)
  1. PONATINIB [Suspect]
     Active Substance: PONATINIB
     Dosage: 30 MG, QD
     Route: 048
     Dates: start: 20140704
  2. PONATINIB [Suspect]
     Active Substance: PONATINIB
     Indication: BLAST CRISIS IN MYELOGENOUS LEUKAEMIA
     Dosage: UNK
     Route: 048
     Dates: start: 20110427

REACTIONS (1)
  - Peripheral arterial occlusive disease [Recovered/Resolved]

NARRATIVE: CASE EVENT DATE: 20140616
